FAERS Safety Report 5153892-5 (Version None)
Quarter: 2006Q4

REPORT INFORMATION
  Report Type: 
  Country: None (occurrence: None)
  Receive Date: 20061120
  Receipt Date: 20061026
  Transmission Date: 20070319
  Serious: Yes (Hospitalization)
  Sender: FDA-Public Use
  Company Number: PHBS2006JP16846

PATIENT
  Age: 27 Year
  Sex: Male

DRUGS (4)
  1. TEGRETOL [Suspect]
     Indication: ACUTE PSYCHOSIS
     Dosage: 200 MG/DAY
     Route: 048
  2. TEGRETOL [Suspect]
     Dosage: 300 MG/DAY
     Route: 048
  3. HALOPERIDOL [Concomitant]
  4. DIAZEPAM [Concomitant]

REACTIONS (10)
  - AGITATION [None]
  - ANXIETY [None]
  - CONFUSIONAL STATE [None]
  - DELUSION [None]
  - DREAMY STATE [None]
  - HALLUCINATION, AUDITORY [None]
  - HALLUCINATION, VISUAL [None]
  - PSYCHOTIC DISORDER [None]
  - RESTLESSNESS [None]
  - STUPOR [None]
